FAERS Safety Report 17687039 (Version 1)
Quarter: 2020Q2

REPORT INFORMATION
  Report Type: Report from Study
  Country: None (occurrence: US)
  Receive Date: 20200421
  Receipt Date: 20200421
  Transmission Date: 20200714
  Serious: Yes (Hospitalization, Other)
  Sender: FDA-Public Use
  Company Number: US-ABBVIE-20K-163-3333744-00

PATIENT
  Age: 67 Year
  Sex: Female
  Weight: 90.8 kg

DRUGS (4)
  1. LEVOTHYROXINE. [Concomitant]
     Active Substance: LEVOTHYROXINE
     Indication: HYPOTHYROIDISM
  2. HUMIRA [Suspect]
     Active Substance: ADALIMUMAB
     Route: 058
     Dates: start: 2020
  3. HUMIRA [Suspect]
     Active Substance: ADALIMUMAB
     Indication: IDIOPATHIC URTICARIA
     Route: 058
     Dates: start: 201903, end: 2020
  4. HYDROCORTISONE. [Concomitant]
     Active Substance: HYDROCORTISONE
     Indication: ADRENAL INSUFFICIENCY

REACTIONS (10)
  - Idiopathic urticaria [Recovered/Resolved]
  - Spinal fusion surgery [Unknown]
  - Neck pain [Recovering/Resolving]
  - Back pain [Recovering/Resolving]
  - Neck surgery [Recovering/Resolving]
  - Musculoskeletal discomfort [Recovering/Resolving]
  - Urticaria [Recovered/Resolved]
  - Urticaria [Unknown]
  - Deformity [Recovering/Resolving]
  - Off label use [Unknown]

NARRATIVE: CASE EVENT DATE: 2019
